FAERS Safety Report 6167856-6 (Version None)
Quarter: 2009Q2

REPORT INFORMATION
  Report Type: 
  Country: None (occurrence: None)
  Receive Date: 20090427
  Receipt Date: 20090417
  Transmission Date: 20091009
  Serious: Yes (Hospitalization)
  Sender: FDA-Public Use
  Company Number: BR-JNJFOC-20090404608

PATIENT
  Age: 55 Year
  Sex: Male

DRUGS (1)
  1. REMICADE [Suspect]
     Indication: ANKYLOSING SPONDYLITIS
     Dosage: RECEIVED 4 INFUSIONS IN 2008
     Route: 042

REACTIONS (3)
  - CARDIOGENIC SHOCK [None]
  - DISSEMINATED TUBERCULOSIS [None]
  - SYNCOPE [None]
